FAERS Safety Report 25607250 (Version 2)
Quarter: 2025Q3

REPORT INFORMATION
  Report Type: Spontaneous
  Country: JP (occurrence: JP)
  Receive Date: 20250725
  Receipt Date: 20250811
  Transmission Date: 20251020
  Serious: Yes (Hospitalization)
  Sender: AMGEN
  Company Number: JP-KYOWAKIRIN-2025KK014228

PATIENT
  Age: 8 Decade
  Sex: Male

DRUGS (5)
  1. PEGFILGRASTIM [Suspect]
     Active Substance: PEGFILGRASTIM
     Indication: Product used for unknown indication
     Route: 058
  2. FLUOROURACIL [Suspect]
     Active Substance: FLUOROURACIL
     Indication: Gastrointestinal carcinoma
     Route: 065
  3. OXALIPLATIN [Concomitant]
     Active Substance: OXALIPLATIN
     Indication: Gastrointestinal carcinoma
     Route: 065
  4. IRINOTECAN HYDROCHLORIDE [Concomitant]
     Active Substance: IRINOTECAN HYDROCHLORIDE
     Indication: Gastrointestinal carcinoma
     Route: 065
  5. LEVOLEUCOVORIN [Concomitant]
     Active Substance: LEVOLEUCOVORIN
     Indication: Gastrointestinal carcinoma
     Route: 065

REACTIONS (3)
  - Neutrophil count decreased [Recovered/Resolved]
  - Therapeutic response delayed [Unknown]
  - Colony stimulating factor therapy [Unknown]

NARRATIVE: CASE EVENT DATE: 20250701
